FAERS Safety Report 10154002 (Version 1)
Quarter: 2014Q2

REPORT INFORMATION
  Report Type: Spontaneous
  Country: US (occurrence: US)
  Receive Date: 20140506
  Receipt Date: 20140506
  Transmission Date: 20141212
  Serious: Yes (Other)
  Sender: FDA-Public Use
  Company Number: US-SHIRE-US201401911

PATIENT
  Age: 14 Year
  Sex: Male

DRUGS (2)
  1. VYVANSE [Suspect]
     Indication: PRODUCT USED FOR UNKNOWN INDICATION
     Dosage: 20 MG, ONE DOSE
     Route: 065
  2. VYVANSE [Suspect]
     Dosage: 20 MG, OTHER (7 DOSES)
     Route: 065

REACTIONS (3)
  - Tachycardia [Recovered/Resolved]
  - Intentional overdose [Recovered/Resolved]
  - Drug diversion [Unknown]
